FAERS Safety Report 12921380 (Version 3)
Quarter: 2016Q4

REPORT INFORMATION
  Report Type: Spontaneous
  Country: BR (occurrence: BR)
  Receive Date: 20161108
  Receipt Date: 20161221
  Transmission Date: 20170207
  Serious: Yes (Hospitalization)
  Sender: FDA-Public Use
  Company Number: BR-GLAXOSMITHKLINE-BR2016GSK159023

PATIENT
  Age: 9 Year
  Sex: Female
  Weight: 41 kg

DRUGS (5)
  1. FLIXOTIDE (CFC-FREE) [Suspect]
     Active Substance: FLUTICASONE PROPIONATE
     Indication: HYPERSENSITIVITY
     Dosage: 1 PUFF(S), BID
     Route: 055
  2. NASONEX [Suspect]
     Active Substance: MOMETASONE FUROATE
     Indication: SINUSITIS
     Dosage: 2 PUFF(S), QD
     Route: 045
     Dates: start: 20161017
  3. AEROLIN [Suspect]
     Active Substance: ALBUTEROL
     Indication: INHALATION THERAPY
     Dosage: 12 PUFF(S), QD
     Route: 055
     Dates: start: 20161013
  4. ZINNAT [Suspect]
     Active Substance: CEFUROXIME AXETIL
     Indication: SINUSITIS
     Dosage: 10 ML, BID
     Route: 048
     Dates: start: 20161017
  5. CLENIL [Suspect]
     Active Substance: BECLOMETHASONE DIPROPIONATE
     Indication: SINUSITIS
     Dosage: 0.5 FL, BID
     Route: 055
     Dates: start: 20161017

REACTIONS (11)
  - Pyrexia [Recovered/Resolved]
  - Toothache [Recovered/Resolved]
  - Cough [Not Recovered/Not Resolved]
  - Product quality issue [Unknown]
  - Prescribed overdose [Not Recovered/Not Resolved]
  - Product use issue [Not Recovered/Not Resolved]
  - Drug ineffective [Not Recovered/Not Resolved]
  - Rhinorrhoea [Unknown]
  - Sinusitis [Recovering/Resolving]
  - Condition aggravated [Unknown]
  - Headache [Recovered/Resolved]

NARRATIVE: CASE EVENT DATE: 20161017
